FAERS Safety Report 21274158 (Version 1)
Quarter: 2022Q3

REPORT INFORMATION
  Report Type: Spontaneous
  Country: CA (occurrence: CA)
  Receive Date: 20220831
  Receipt Date: 20220831
  Transmission Date: 20221027
  Serious: Yes (Other)
  Sender: FDA-Public Use
  Company Number: CA-PFIZER INC-202201091249

PATIENT
  Age: 40 Year
  Sex: Female

DRUGS (1)
  1. HEPARIN SODIUM [Suspect]
     Active Substance: HEPARIN SODIUM
     Dosage: UNK

REACTIONS (11)
  - Thrombocytopenia [Unknown]
  - Pulmonary embolism [Unknown]
  - Blindness [Recovered/Resolved]
  - Cerebrovascular accident [Recovered/Resolved]
  - Rash [Unknown]
  - Urticaria [Unknown]
  - Paraesthesia [Unknown]
  - Platelet count decreased [Unknown]
  - COVID-19 [Recovered/Resolved]
  - Herpes zoster [Recovered/Resolved]
  - Factor V Leiden mutation [Recovered/Resolved]

NARRATIVE: CASE EVENT DATE: 20191201
